FAERS Safety Report 5950152-7 (Version None)
Quarter: 2008Q4

REPORT INFORMATION
  Report Type: 
  Country: None (occurrence: None)
  Receive Date: 20081112
  Receipt Date: 20080512
  Transmission Date: 20090506
  Serious: No
  Sender: FDA-Public Use
  Company Number: US-BAYER-US-2007-022824

PATIENT
  Age: 78 Year
  Sex: Male
  Weight: 60 kg

DRUGS (8)
  1. SOTALOL HCL [Suspect]
  2. ACETYLSALICYLIC ACID SRT [Concomitant]
     Dosage: UNIT DOSE: 325 MG
  3. FENTANYL [Concomitant]
     Dosage: UNIT DOSE: 25 ?G
  4. NITROGLYCERIN [Concomitant]
     Route: 060
  5. FAMOTIDINE [Concomitant]
     Dosage: UNIT DOSE: 20 MG
  6. ACETAMINOPHEN AND HYDROCODONE BITARTRATE [Concomitant]
  7. SERTRALINE [Concomitant]
     Dosage: UNIT DOSE: 75 MG
  8. SIMVASTATIN [Concomitant]
     Dosage: UNIT DOSE: 20 MG

REACTIONS (1)
  - SKIN ULCER [None]
